FAERS Safety Report 13168612 (Version 1)
Quarter: 2017Q1

REPORT INFORMATION
  Report Type: Spontaneous
  Country: US (occurrence: US)
  Receive Date: 20170131
  Receipt Date: 20170131
  Transmission Date: 20170428
  Serious: No
  Sender: FDA-Public Use
  Company Number: US-TEVA-727449ACC

PATIENT
  Age: 34 Year
  Sex: Male

DRUGS (3)
  1. MULTI VITAMINS [Concomitant]
     Active Substance: VITAMINS
  2. RISPERIDONE. [Concomitant]
     Active Substance: RISPERIDONE
  3. COPAXONE [Suspect]
     Active Substance: GLATIRAMER ACETATE
     Indication: MULTIPLE SCLEROSIS
     Dosage: PRE FILLED SYRINGE
     Route: 058
     Dates: start: 201604

REACTIONS (1)
  - Depression [Unknown]

NARRATIVE: CASE EVENT DATE: 201610
